FAERS Safety Report 14704668 (Version 2)
Quarter: 2018Q2

REPORT INFORMATION
  Report Type: Spontaneous
  Country: US (occurrence: US)
  Receive Date: 20180402
  Receipt Date: 20180420
  Transmission Date: 20180711
  Serious: Yes (Other)
  Sender: FDA-Public Use
  Company Number: US-CELGENEUS-USA-20180308833

PATIENT
  Sex: Male

DRUGS (3)
  1. OTEZLA [Suspect]
     Active Substance: APREMILAST
     Indication: PRODUCT USED FOR UNKNOWN INDICATION
     Route: 048
  2. HUMIRA [Suspect]
     Active Substance: ADALIMUMAB
     Indication: PSORIASIS
     Dosage: .8 MILLILITER
     Route: 058
  3. GOLD BOND ORIGINAL STRENGTH POWDER [Suspect]
     Active Substance: MENTHOL\ZINC OXIDE
     Indication: PRODUCT USED FOR UNKNOWN INDICATION
     Route: 065

REACTIONS (2)
  - Drug ineffective [Not Recovered/Not Resolved]
  - Psoriasis [Recovering/Resolving]
